FAERS Safety Report 8235163-3 (Version None)
Quarter: 2012Q1

REPORT INFORMATION
  Report Type: 
  Country: None (occurrence: None)
  Receive Date: 20120326
  Receipt Date: 20120321
  Transmission Date: 20120608
  Serious: Yes (Life-Threatening)
  Sender: FDA-Public Use
  Company Number: GB-ROCHE-1052225

PATIENT
  Age: 47 Year
  Sex: Male
  Weight: 89.4 kg

DRUGS (1)
  1. VEMURAFENIB [Suspect]
     Indication: METASTATIC MALIGNANT MELANOMA
     Dosage: DATE OF LAST DOSE PRIOR TO EVENT: 20/MAR/2012
     Route: 048
     Dates: start: 20111228

REACTIONS (1)
  - INTESTINAL PERFORATION [None]
